FAERS Safety Report 24860353 (Version 10)
Quarter: 2025Q4

REPORT INFORMATION
  Report Type: Spontaneous
  Country: JP (occurrence: JP)
  Receive Date: 20250120
  Receipt Date: 20251027
  Transmission Date: 20260117
  Serious: Yes (Death, Life-Threatening, Other)
  Sender: AMGEN
  Company Number: JP-KISSEI-TV20250035_P_1

PATIENT
  Age: 88 Year
  Sex: Female
  Weight: 38 kg

DRUGS (23)
  1. TAVNEOS [Suspect]
     Active Substance: AVACOPAN
     Indication: Anti-neutrophil cytoplasmic antibody positive vasculitis
     Dosage: 20 MG, QD
     Route: 048
     Dates: start: 20241105, end: 20241108
  2. TAVNEOS [Suspect]
     Active Substance: AVACOPAN
     Indication: Microscopic polyangiitis
     Dosage: 40 MG, QD
     Route: 048
     Dates: start: 20241109, end: 20241111
  3. TAVNEOS [Suspect]
     Active Substance: AVACOPAN
     Dosage: 30 MG, BID
     Route: 048
     Dates: start: 20241112, end: 20241216
  4. RITUXIMAB [Concomitant]
     Active Substance: RITUXIMAB
     Indication: Microscopic polyangiitis
     Dosage: UNK
     Route: 040
     Dates: start: 20241105, end: 20241105
  5. RITUXIMAB [Concomitant]
     Active Substance: RITUXIMAB
     Dosage: UNK
     Route: 040
     Dates: start: 20241112, end: 20241112
  6. RITUXIMAB [Concomitant]
     Active Substance: RITUXIMAB
     Dosage: UNK
     Route: 040
     Dates: start: 20241119, end: 20241119
  7. RITUXIMAB [Concomitant]
     Active Substance: RITUXIMAB
     Dosage: UNK
     Route: 040
     Dates: start: 20241126, end: 20241126
  8. BOS TAURUS ADRENAL CORTEX CORTICOSTEROIDS [Concomitant]
     Active Substance: BOS TAURUS ADRENAL CORTEX CORTICOSTEROIDS
     Indication: Microscopic polyangiitis
     Dosage: 7.5 MG, QD
     Route: 065
  9. AMLODIPINE BESYLATE [Concomitant]
     Active Substance: AMLODIPINE BESYLATE
     Indication: Hypertension
     Dosage: 2.5 MG, QD
     Route: 048
     Dates: end: 20241223
  10. ESOMEPRAZOLE MAGNESIUM [Concomitant]
     Active Substance: ESOMEPRAZOLE MAGNESIUM
     Indication: Gastrooesophageal reflux disease
     Dosage: 10 MG, QD
     Route: 048
     Dates: end: 20250128
  11. CLOPIDOGREL BISULFATE [Concomitant]
     Active Substance: CLOPIDOGREL BISULFATE
     Indication: Cerebral infarction
     Dosage: 50 MG, QD
     Route: 048
     Dates: end: 20250107
  12. DAPRODUSTAT [Concomitant]
     Active Substance: DAPRODUSTAT
     Indication: Nephrogenic anaemia
     Dosage: 2 MG, QD
     Route: 048
     Dates: start: 20241001, end: 20250128
  13. SENNOSIDES [Concomitant]
     Active Substance: SENNOSIDES
     Indication: Constipation
     Dosage: 24 MG, QD
     Route: 048
     Dates: start: 20240921, end: 20250128
  14. POTASSIUM ASPARTATE [Concomitant]
     Active Substance: POTASSIUM ASPARTATE
     Indication: Hypokalaemia
     Dosage: 300 MG, TID
     Route: 065
     Dates: end: 20250128
  15. ELOBIXIBAT [Concomitant]
     Active Substance: ELOBIXIBAT
     Indication: Constipation
     Dosage: 10 MG, QD
     Route: 048
     Dates: start: 20240824, end: 20250128
  16. PREDONINE [Concomitant]
     Active Substance: PREDNISOLONE
     Indication: Microscopic polyangiitis
     Dosage: 20 MG, QD
     Route: 065
     Dates: start: 20241104, end: 20241110
  17. PREDONINE [Concomitant]
     Active Substance: PREDNISOLONE
     Dosage: 10 MG, QD
     Route: 065
     Dates: start: 20241111, end: 20241124
  18. PREDONINE [Concomitant]
     Active Substance: PREDNISOLONE
     Dosage: 7.5 MG, QD
     Route: 065
     Dates: start: 20241125, end: 20241208
  19. PREDONINE [Concomitant]
     Active Substance: PREDNISOLONE
     Dosage: 5 MG, QD
     Route: 065
     Dates: start: 20241209, end: 20250128
  20. PREDONINE [Concomitant]
     Active Substance: PREDNISOLONE
     Dosage: 4 MG, QD
     Route: 065
  21. SULFAMETHOXAZOLE\TRIMETHOPRIM [Concomitant]
     Active Substance: SULFAMETHOXAZOLE\TRIMETHOPRIM
     Indication: Antifungal prophylaxis
     Dosage: 0.33 WEEK
     Route: 048
     Dates: start: 202411, end: 20241216
  22. Sitafloxacin anhydrous [Concomitant]
     Indication: Urinary tract infection
     Dosage: 50 MG, QOD
     Route: 048
     Dates: start: 20241211, end: 20241215
  23. FUROSEMIDE [Concomitant]
     Active Substance: FUROSEMIDE
     Dosage: UNK
     Route: 065
     Dates: start: 20241115

REACTIONS (5)
  - Acute hepatic failure [Fatal]
  - Sepsis [Fatal]
  - Drug-induced liver injury [Unknown]
  - Jaundice [Unknown]
  - Intentional underdose [Unknown]

NARRATIVE: CASE EVENT DATE: 20241105
